APPROVED DRUG PRODUCT: DOXORUBICIN HYDROCHLORIDE
Active Ingredient: DOXORUBICIN HYDROCHLORIDE
Strength: 10MG/VIAL
Dosage Form/Route: INJECTABLE;INJECTION
Application: A200170 | Product #001
Applicant: MYLAN LABORATORIES LTD
Approved: Oct 28, 2011 | RLD: No | RS: No | Type: DISCN